FAERS Safety Report 10152076 (Version 1)
Quarter: 2014Q2

REPORT INFORMATION
  Report Type: Spontaneous
  Country: US (occurrence: US)
  Receive Date: 20140505
  Receipt Date: 20140505
  Transmission Date: 20141212
  Serious: No
  Sender: FDA-Public Use
  Company Number: US-BRISTOL-MYERS SQUIBB COMPANY-20401212

PATIENT
  Sex: Male

DRUGS (3)
  1. FARXIGA [Suspect]
  2. METFORMIN [Concomitant]
  3. VICTOZA [Concomitant]

REACTIONS (4)
  - Flatulence [Unknown]
  - Abdominal distension [Unknown]
  - Diarrhoea [Unknown]
  - Lactose intolerance [Unknown]
